FAERS Safety Report 7641497-3 (Version None)
Quarter: 2011Q3

REPORT INFORMATION
  Report Type: 
  Country: None (occurrence: None)
  Receive Date: 20110728
  Receipt Date: 20110718
  Transmission Date: 20111222
  Serious: Yes (Hospitalization)
  Sender: FDA-Public Use
  Company Number: US-CELGENEUS-163-AB007-11060086

PATIENT
  Sex: Female
  Weight: 40.088 kg

DRUGS (32)
  1. CYMBALTA [Concomitant]
     Indication: DEPRESSION
     Dosage: 60 MILLIGRAM
     Route: 065
  2. CEPACOL [Concomitant]
     Route: 065
  3. GEMCITABINE [Suspect]
     Dosage: 1000 MILLIGRAM/SQ. METER
     Route: 041
     Dates: start: 20110606
  4. TRAZODONE HCL [Concomitant]
     Route: 065
  5. POTASSIUM CHLORIDE [Concomitant]
     Route: 065
  6. TYLENOL-500 [Concomitant]
     Dosage: 650 MILLIGRAM
     Route: 048
  7. MIRALAX [Concomitant]
     Route: 065
  8. ABRAXANE [Suspect]
     Dosage: 125 MILLIGRAM/SQ. METER
     Route: 041
     Dates: start: 20110606
  9. GEMCITABINE [Suspect]
     Dosage: 1000 MILLIGRAM/SQ. METER
     Route: 041
     Dates: start: 20110509, end: 20110523
  10. CITALOPRAM HYDROBROMIDE [Concomitant]
     Route: 065
  11. COLACE [Concomitant]
     Route: 065
  12. NEURONTIN [Concomitant]
     Dosage: 300 MILLIGRAM
     Route: 048
  13. DILAUDID [Concomitant]
     Indication: PAIN
     Dosage: 4 MILLIGRAM
     Route: 048
  14. LEVAQUIN [Concomitant]
     Dosage: 500 MILLIGRAM
     Route: 048
  15. CLARITIN [Concomitant]
     Dosage: 10 MILLIGRAM
     Route: 048
  16. COMPAZINE [Concomitant]
     Indication: NAUSEA
     Route: 065
  17. IMODIUM [Concomitant]
  18. LEVOTHYROXINE SODIUM [Concomitant]
     Dosage: 150 MICROGRAM
     Route: 065
  19. OMEPRAZOLE [Concomitant]
     Route: 065
  20. MORPHINE SULFATE [Concomitant]
     Route: 041
  21. BENADRYL [Concomitant]
     Dosage: 50 MILLIGRAM
     Route: 048
  22. MS CONTIN [Concomitant]
     Indication: PAIN
     Dosage: 30 MILLIGRAM
     Route: 065
  23. PROTONIX [Concomitant]
     Dosage: 40 MILLIGRAM
     Route: 041
  24. SENOKOT [Concomitant]
     Route: 065
  25. MORPHINE SULFATE [Concomitant]
     Indication: PAIN
     Dosage: 15 MILLIGRAM
     Route: 065
  26. XANAX [Concomitant]
     Indication: ANXIETY
     Dosage: .5 MILLIGRAM
     Route: 048
  27. ATIVAN [Concomitant]
     Dosage: 1 MILLIGRAM
     Route: 041
  28. FLAGYL [Concomitant]
     Dosage: 500 MILLIGRAM
     Route: 048
  29. COMPAZINE [Concomitant]
     Indication: VOMITING
     Dosage: 10 MILLIGRAM
     Route: 041
  30. ABRAXANE [Suspect]
     Dosage: 125 MILLIGRAM/SQ. METER
     Route: 041
     Dates: start: 20110509, end: 20110523
  31. TYLENOL-500 [Concomitant]
     Indication: HEADACHE
  32. FLONASE [Concomitant]
     Dosage: 2 PUFFS
     Route: 045

REACTIONS (3)
  - HAEMOGLOBIN DECREASED [None]
  - WHITE BLOOD CELL COUNT DECREASED [None]
  - GASTROENTERITIS [None]
